FAERS Safety Report 5864812-X (Version None)
Quarter: 2008Q3

REPORT INFORMATION
  Report Type: 
  Country: None (occurrence: None)
  Receive Date: 20080829
  Receipt Date: 20080718
  Transmission Date: 20090109
  Serious: No
  Sender: FDA-Public Use
  Company Number: US-ABBOTT-08P-163-0464282-00

PATIENT
  Sex: Female
  Weight: 98.972 kg

DRUGS (11)
  1. SIMCOR [Suspect]
     Indication: HIGH DENSITY LIPOPROTEIN DECREASED
     Dosage: 500/20MG, DAILY
     Route: 048
     Dates: start: 20080612, end: 20080719
  2. TRAMADOL HCL [Concomitant]
     Indication: ARTHRALGIA
  3. PREGABALIN [Concomitant]
     Indication: NEUROPATHY PERIPHERAL
  4. NOVOLOG [Concomitant]
     Indication: DIABETES MELLITUS
     Route: 058
  5. ATENOLOL [Concomitant]
     Indication: HYPERTENSION
  6. FUROSEMIDE [Concomitant]
     Indication: HYPERTENSION
  7. POTASSIUM CHLORIDE [Concomitant]
     Indication: BLOOD POTASSIUM DECREASED
  8. METFORMIN HCL [Concomitant]
     Indication: DIABETES MELLITUS
  9. LANSOPRAZOLE [Concomitant]
     Indication: GASTROOESOPHAGEAL REFLUX DISEASE
  10. AMLODIPINE [Concomitant]
     Indication: HYPERTENSION
  11. ACETYLSALICYLIC ACID SRT [Concomitant]
     Indication: DRUG USE FOR UNKNOWN INDICATION

REACTIONS (6)
  - ARTERIOSCLEROSIS [None]
  - FLUSHING [None]
  - HYPERHIDROSIS [None]
  - NAUSEA [None]
  - PAIN IN EXTREMITY [None]
  - PRURITUS [None]
